FAERS Safety Report 14525352 (Version 4)
Quarter: 2018Q2

REPORT INFORMATION
  Report Type: Spontaneous
  Country: SK (occurrence: SK)
  Receive Date: 20180213
  Receipt Date: 20180427
  Transmission Date: 20180711
  Serious: Yes (Hospitalization)
  Sender: FDA-Public Use
  Company Number: SK-AUROBINDO-AUR-APL-2018-006115

PATIENT
  Age: 80 Year
  Sex: Male

DRUGS (20)
  1. ASPIRIN. [Concomitant]
     Active Substance: ASPIRIN
     Dosage: ()
  2. RAMIPRIL. [Suspect]
     Active Substance: RAMIPRIL
     Dosage: 5 MILLIGRAM
     Route: 048
  3. RAMIPRIL. [Suspect]
     Active Substance: RAMIPRIL
     Indication: HYPERTENSION
     Dosage: 5 MILLIGRAM
     Route: 048
  4. RAMIPRIL. [Suspect]
     Active Substance: RAMIPRIL
     Dosage: 5 MG
     Route: 065
  5. ASPIRIN. [Concomitant]
     Active Substance: ASPIRIN
     Indication: DIABETES MELLITUS
     Dosage: ()
  6. METFORMIN [Concomitant]
     Active Substance: METFORMIN HYDROCHLORIDE
     Indication: HYPERTENSION
     Dosage: ()
  7. METFORMIN [Concomitant]
     Active Substance: METFORMIN HYDROCHLORIDE
     Indication: ATRIAL FIBRILLATION
     Dosage: ()
  8. RAMIPRIL. [Suspect]
     Active Substance: RAMIPRIL
     Indication: ATRIAL FIBRILLATION
     Dosage: 5 MILLIGRAM
     Route: 048
  9. ASPIRIN. [Concomitant]
     Active Substance: ASPIRIN
     Dosage: ()
  10. METFORMIN [Concomitant]
     Active Substance: METFORMIN HYDROCHLORIDE
     Indication: DIABETES MELLITUS
     Dosage: ()
  11. RAMIPRIL. [Suspect]
     Active Substance: RAMIPRIL
     Indication: DIABETES MELLITUS
     Dosage: 5 MG, UNK
     Route: 065
  12. RAMIPRIL. [Suspect]
     Active Substance: RAMIPRIL
     Dosage: ()
  13. ASPIRIN. [Concomitant]
     Active Substance: ASPIRIN
     Indication: ATRIAL FIBRILLATION
     Dosage: 300 MG, UNK
     Route: 065
  14. ASPIRIN. [Concomitant]
     Active Substance: ASPIRIN
     Dosage: 300 MG, UNK
     Route: 065
  15. METFORMIN [Concomitant]
     Active Substance: METFORMIN HYDROCHLORIDE
     Indication: ATRIAL FIBRILLATION
     Dosage: UNK
     Route: 065
  16. METFORMIN [Concomitant]
     Active Substance: METFORMIN HYDROCHLORIDE
     Indication: DIABETES MELLITUS
     Dosage: UNK ()
     Route: 065
  17. RAMIPRIL. [Suspect]
     Active Substance: RAMIPRIL
     Dosage: 5 MG, UNK
     Route: 065
  18. ASPIRIN. [Concomitant]
     Active Substance: ASPIRIN
     Dosage: ()
  19. RAMIPRIL. [Suspect]
     Active Substance: RAMIPRIL
     Dosage: ()
  20. ASPIRIN. [Concomitant]
     Active Substance: ASPIRIN
     Indication: HYPERTENSION
     Dosage: ()

REACTIONS (3)
  - Product use in unapproved indication [Unknown]
  - Hemiplegia [Unknown]
  - Embolic stroke [Unknown]
